FAERS Safety Report 4888020-4 (Version None)
Quarter: 2006Q1

REPORT INFORMATION
  Report Type: 
  Country: None (occurrence: None)
  Receive Date: 20060118
  Receipt Date: 20051229
  Transmission Date: 20060701
  Serious: Yes (Hospitalization)
  Sender: FDA-Public Use
  Company Number: CA_050708421

PATIENT
  Age: 16 Year
  Sex: Male
  Weight: 95.5 kg

DRUGS (12)
  1. ZYPREXA [Suspect]
     Indication: DEPRESSION
     Dosage: 10 MG
     Dates: start: 20020213, end: 20020901
  2. HUMALOG [Suspect]
     Dosage: SEE IMAGE
     Dates: start: 20030520
  3. HUMALOG [Suspect]
     Dosage: SEE IMAGE
     Dates: start: 20040513
  4. EFFEXOR [Concomitant]
  5. SEROQUEL [Concomitant]
  6. CELEXA [Concomitant]
  7. HUMULIN N [Concomitant]
  8. MONAXIN (CLARITHROMYCIN) [Concomitant]
  9. RISPERIDONE [Concomitant]
  10. MINOCYCLINE HCL [Concomitant]
  11. ADVIL [Concomitant]
  12. FLAGYL [Concomitant]

REACTIONS (23)
  - ABDOMINAL PAIN [None]
  - ADVERSE DRUG REACTION [None]
  - CYSTIC FIBROSIS [None]
  - DEPRESSION [None]
  - DIABETES MELLITUS [None]
  - DIABETIC KETOACIDOSIS [None]
  - DISTURBANCE IN ATTENTION [None]
  - DYSURIA [None]
  - EMOTIONAL DISTRESS [None]
  - FATIGUE [None]
  - FRUSTRATION [None]
  - HAEMOGLOBIN DECREASED [None]
  - HALLUCINATION, AUDITORY [None]
  - HEPATIC STEATOSIS [None]
  - HYPOGLYCAEMIA [None]
  - LETHARGY [None]
  - NEUTROPHIL COUNT ABNORMAL [None]
  - PANCREATIC ATROPHY [None]
  - PANCREATITIS [None]
  - PSEUDOCYST [None]
  - SCHIZOAFFECTIVE DISORDER [None]
  - TREMOR [None]
  - WEIGHT INCREASED [None]
